FAERS Safety Report 24330699 (Version 3)
Quarter: 2024Q3

REPORT INFORMATION
  Report Type: Spontaneous
  Country: JP (occurrence: JP)
  Receive Date: 20240918
  Receipt Date: 20240925
  Transmission Date: 20241017
  Serious: Yes (Other)
  Sender: BRISTOL MYERS SQUIBB
  Company Number: JP-BRISTOL-MYERS SQUIBB COMPANY-2024-133996

PATIENT
  Age: 85 Year
  Sex: Male

DRUGS (1)
  1. ORENCIA [Suspect]
     Active Substance: ABATACEPT
     Indication: Rheumatoid arthritis
     Route: 058

REACTIONS (6)
  - Device breakage [Unknown]
  - Device delivery system issue [Unknown]
  - Poor quality product administered [Unknown]
  - Device safety feature issue [Unknown]
  - Wrong technique in product usage process [Unknown]
  - Needle issue [Unknown]
